FAERS Safety Report 4470379-3 (Version None)
Quarter: 2004Q3

REPORT INFORMATION
  Report Type: 
  Country: None (occurrence: None)
  Receive Date: 20040910
  Receipt Date: 20040625
  Transmission Date: 20050211
  Serious: Yes (Death)
  Sender: FDA-Public Use
  Company Number: 2004-00138

PATIENT
  Age: 77 Year
  Sex: Male
  Weight: 78.5 kg

DRUGS (9)
  1. VELCADE [Suspect]
     Indication: MANTLE CELL LYMPHOMA
     Dosage: 3.00 MG, IV BOLUS
     Route: 040
     Dates: start: 20031219, end: 20031219
  2. PREDNISONE [Concomitant]
  3. CARDIZEM [Concomitant]
  4. LANOXIN [Concomitant]
  5. SYNTHROID [Concomitant]
  6. ZOVIRAX [Concomitant]
  7. KLONOPIN [Concomitant]
  8. BACTRIM [Concomitant]
  9. SENOKOT [Concomitant]

REACTIONS (1)
  - DISEASE PROGRESSION [None]
